FAERS Safety Report 7536786-7 (Version None)
Quarter: 2011Q2

REPORT INFORMATION
  Report Type: 
  Country: None (occurrence: None)
  Receive Date: 20110609
  Receipt Date: 20110601
  Transmission Date: 20111010
  Serious: Yes (Other)
  Sender: FDA-Public Use
  Company Number: US-ROCHE-773359

PATIENT
  Sex: Male
  Weight: 73.9 kg

DRUGS (13)
  1. DEXAMETHASONE [Concomitant]
  2. PROCHLORPERAZINE TAB [Concomitant]
  3. SIMVASTATIN [Concomitant]
  4. ZITHROMAX [Concomitant]
  5. AUGMENTIN '125' [Concomitant]
     Dosage: 875 MG-125 MG TAB
  6. AVASTIN [Suspect]
     Dosage: FORM: INFUSION.PERMANENTLY DISCONTINUED
     Route: 042
     Dates: start: 20110308, end: 20110329
  7. CARBOPLATIN [Concomitant]
     Route: 042
     Dates: start: 20110329
  8. AMLODIPINE [Concomitant]
  9. IBUPROFEN [Concomitant]
  10. LISINOPRIL [Concomitant]
  11. POTASSIUM CHLORIDE [Concomitant]
     Dosage: 20 MEQ TAB
  12. OMEPRAZOLE [Concomitant]
  13. DOCETAXEL [Concomitant]
     Route: 042
     Dates: start: 20110329

REACTIONS (2)
  - CHEMICAL INJURY [None]
  - ALOPECIA [None]
